FAERS Safety Report 5583787-4 (Version None)
Quarter: 2008Q1

REPORT INFORMATION
  Report Type: 
  Country: None (occurrence: None)
  Receive Date: 20080108
  Receipt Date: 20071227
  Transmission Date: 20080703
  Serious: Yes (Life-Threatening, Other)
  Sender: FDA-Public Use
  Company Number: JP-BAYER-200711102BYL

PATIENT
  Age: 86 Year
  Sex: Female

DRUGS (7)
  1. CIPROXAN-I.V. [Suspect]
     Indication: MUSCLE ABSCESS
     Dosage: TOTAL DAILY DOSE: 600 MG  UNIT DOSE: 300 MG
     Route: 041
     Dates: start: 20071026, end: 20071122
  2. CIPROXAN-I.V. [Interacting]
     Dosage: TOTAL DAILY DOSE: 600 MG  UNIT DOSE: 300 MG
     Route: 041
     Dates: start: 20071210, end: 20071221
  3. WARFARIN SODIUM [Interacting]
     Route: 048
  4. KEITEN [Concomitant]
     Indication: MUSCLE ABSCESS
     Route: 041
     Dates: start: 20071019, end: 20071025
  5. TIENAM [Concomitant]
     Indication: MUSCLE ABSCESS
     Route: 041
     Dates: start: 20071124, end: 20071210
  6. VANCOMYCIN [Concomitant]
     Indication: MUSCLE ABSCESS
     Route: 041
     Dates: start: 20071026, end: 20071119
  7. VANCOMYCIN [Concomitant]
     Route: 041
     Dates: start: 20071213, end: 20071221

REACTIONS (2)
  - COAGULOPATHY [None]
  - GRANULOCYTOPENIA [None]
